FAERS Safety Report 6471333-2 (Version None)
Quarter: 2009Q4

REPORT INFORMATION
  Report Type: 
  Country: None (occurrence: None)
  Receive Date: 20091203
  Receipt Date: 20080208
  Transmission Date: 20100525
  Serious: Yes (Death, Life-Threatening, Hospitalization)
  Sender: FDA-Public Use
  Company Number: US-ELI_LILLY_AND_COMPANY-US200801006293

PATIENT

DRUGS (14)
  1. BYETTA [Suspect]
     Dosage: 5 UG, 2/D
     Route: 058
     Dates: start: 20051006, end: 20051007
  2. BYETTA [Suspect]
     Dosage: 10 UG, 2/D
     Route: 058
     Dates: start: 20060417, end: 20060614
  3. GLUCOPHAGE [Concomitant]
     Dosage: 1000 MG, 2/D
  4. LOTENSIN [Concomitant]
     Dosage: 10 MG, DAILY (1/D)
  5. LIPITOR [Concomitant]
     Dosage: 20 MG, DAILY (1/D)
  6. NEURONTIN [Concomitant]
     Dosage: 300 MG, 2/D
  7. GLIPIZIDE [Concomitant]
     Dosage: 10 MG, DAILY (1/D)
  8. IBUPROFEN [Concomitant]
     Dosage: 600 MG, AS NEEDED
  9. BACTRIM DS [Concomitant]
     Dosage: UNK, 2/D
     Route: 048
  10. ISOSORBIDE [Concomitant]
     Dosage: 10 MG, DAILY (1/D)
  11. PAXIL [Concomitant]
     Dosage: 20 MG, EACH MORNING
  12. PHENERGAN HCL [Concomitant]
     Dosage: 25 MG, AS NEEDED
  13. ASPIRIN [Concomitant]
     Dosage: 81 MG, DAILY (1/D)
  14. LORTAB [Concomitant]
     Dosage: 5 UNK, AS NEEDED

REACTIONS (6)
  - BLOOD GLUCOSE INCREASED [None]
  - CARDIAC ARREST [None]
  - CEREBRAL HAEMORRHAGE [None]
  - HYPERSENSITIVITY [None]
  - RENAL FAILURE ACUTE [None]
  - THROMBOCYTOPENIA [None]
